FAERS Safety Report 12422740 (Version 2)
Quarter: 2016Q3

REPORT INFORMATION
  Report Type: Spontaneous
  Country: BR (occurrence: BR)
  Receive Date: 20160601
  Receipt Date: 20160728
  Transmission Date: 20161109
  Serious: Yes (Other)
  Sender: FDA-Public Use
  Company Number: BR-ASTRAZENECA-2016SE57709

PATIENT
  Age: 838 Month
  Sex: Male
  Weight: 74 kg

DRUGS (7)
  1. LEVOID [Concomitant]
     Active Substance: LEVOTHYROXINE
  2. CILOSTAZOL. [Concomitant]
     Active Substance: CILOSTAZOL
  3. RANITIDINE. [Concomitant]
     Active Substance: RANITIDINE
  4. BACLOFEN. [Concomitant]
     Active Substance: BACLOFEN
  5. DEPAKENE [Concomitant]
     Active Substance: VALPROIC ACID
  6. OXCARBAZEPINE. [Concomitant]
     Active Substance: OXCARBAZEPINE
  7. ONGLYZA [Suspect]
     Active Substance: SAXAGLIPTIN HYDROCHLORIDE
     Indication: TYPE 2 DIABETES MELLITUS
     Route: 048
     Dates: start: 20160510, end: 20160524

REACTIONS (2)
  - Rash erythematous [Not Recovered/Not Resolved]
  - Eye haemorrhage [Recovered/Resolved]

NARRATIVE: CASE EVENT DATE: 201605
